FAERS Safety Report 16568397 (Version 4)
Quarter: 2019Q4

REPORT INFORMATION
  Report Type: Report from Study
  Country: US (occurrence: US)
  Receive Date: 20190712
  Receipt Date: 20191004
  Transmission Date: 20200122
  Serious: Yes (Hospitalization)
  Sender: FDA-Public Use
  Company Number: US-ACTELION-A-NJ2019-190781

PATIENT
  Age: 79 Year
  Sex: Female
  Weight: 45.35 kg

DRUGS (28)
  1. CALTRATE WITH VITAMIN D [Concomitant]
     Active Substance: CALCIUM CARBONATE\CHOLECALCIFEROL
     Dosage: 600 MG, QD
  2. FISH OIL [Concomitant]
     Active Substance: FISH OIL
     Dosage: 750 MG, QD
  3. FLUTICASONE. [Concomitant]
     Active Substance: FLUTICASONE
     Dosage: 50 MCG 2 SPRAY, EACH NOSTRIL QD
     Route: 045
  4. TRIAMCINOLONE [Concomitant]
     Active Substance: TRIAMCINOLONE
     Dosage: UNK, BID PRN
     Route: 061
     Dates: start: 2019
  5. XALATAN [Concomitant]
     Active Substance: LATANOPROST
     Dosage: 120MCG/2.5ML 1 DROP, QD BEDTIME
  6. ACETAMINOPHEN. [Concomitant]
     Active Substance: ACETAMINOPHEN
     Dosage: 650 MG, QD
     Dates: start: 2017
  7. ALBUTEROL SULFATE. [Concomitant]
     Active Substance: ALBUTEROL SULFATE
     Dosage: .5MG/3MG/3ML, BID
     Route: 055
     Dates: start: 2016
  8. ALLEGRA-D 24 HOUR [Concomitant]
     Active Substance: FEXOFENADINE HYDROCHLORIDE\PSEUDOEPHEDRINE HYDROCHLORIDE
     Dosage: 120 MG, Q6HRS PRN
  9. NEILMED SINUS RINSE [Concomitant]
     Active Substance: SODIUM BICARBONATE\SODIUM CHLORIDE
     Dosage: 1 UNK, QD OR PRN
     Route: 045
  10. POTASSIUM CHLORIDE. [Concomitant]
     Active Substance: POTASSIUM CHLORIDE
     Dosage: 20 MEQ, PRN
     Dates: start: 20170922
  11. ALBUTEROL. [Concomitant]
     Active Substance: ALBUTEROL
     Dosage: 2 PUFF, Q6HRS PRN
     Dates: start: 2014
  12. LASIX [Concomitant]
     Active Substance: FUROSEMIDE
     Dosage: 20 MG, QD PRN
     Dates: start: 2013
  13. ESZOPICLONE. [Concomitant]
     Active Substance: ESZOPICLONE
     Dosage: 3 MG, QD
     Dates: start: 2013
  14. MUCINEX [Concomitant]
     Active Substance: GUAIFENESIN
     Dosage: 1200 MG, BID
     Dates: start: 2015
  15. CARVEDILOL. [Concomitant]
     Active Substance: CARVEDILOL
     Dosage: 625 MG, TID
  16. FERROUS SULFATE. [Concomitant]
     Active Substance: FERROUS SULFATE
     Dosage: 325 MG, QD
     Dates: start: 2015
  17. CENTRUM SILVER [Concomitant]
     Active Substance: MINERALS\VITAMINS
     Dosage: UNK MG, QD
     Dates: start: 2009
  18. MUPIROCIN. [Concomitant]
     Active Substance: MUPIROCIN
     Dosage: 2% IN EACH NOSTRIL, BID PRN
     Route: 045
     Dates: start: 2019
  19. PIRFENIDONE. [Concomitant]
     Active Substance: PIRFENIDONE
     Dosage: 600 MG, TID
  20. ZOFRAN [Concomitant]
     Active Substance: ONDANSETRON HYDROCHLORIDE
     Dosage: 8 MG, PRN
     Dates: start: 2014
  21. OPSUMIT [Suspect]
     Active Substance: MACITENTAN
     Indication: IDIOPATHIC PULMONARY FIBROSIS
     Dosage: 10 MG, QD
     Route: 048
     Dates: start: 20170323
  22. ESCITALOPRAM [Concomitant]
     Active Substance: ESCITALOPRAM OXALATE
     Dosage: 10 MG, QD
     Dates: start: 2013
  23. OPSUMIT [Suspect]
     Active Substance: MACITENTAN
     Dosage: 10 MG, QD
     Route: 048
     Dates: start: 20190806
  24. LETAIRIS [Concomitant]
     Active Substance: AMBRISENTAN
  25. ASPIRIN. [Concomitant]
     Active Substance: ASPIRIN
     Dosage: 81 MG, QD
  26. ALLEGRA D-12 HOUR [Concomitant]
     Active Substance: FEXOFENADINE HYDROCHLORIDE\PSEUDOEPHEDRINE HYDROCHLORIDE
     Dosage: 60 MG, Q6HRS PRN
  27. DILTIAZEM. [Concomitant]
     Active Substance: DILTIAZEM
     Dosage: 30 MG, TID
     Dates: start: 2016
  28. OMEPRAZOLE. [Concomitant]
     Active Substance: OMEPRAZOLE
     Dosage: 20 MG, QD

REACTIONS (6)
  - Oedema [Not Recovered/Not Resolved]
  - Fall [Not Recovered/Not Resolved]
  - Product dose omission [Unknown]
  - Hospitalisation [Unknown]
  - Fluid retention [Not Recovered/Not Resolved]
  - Pulmonary arterial hypertension [Unknown]

NARRATIVE: CASE EVENT DATE: 201905
